FAERS Safety Report 20549746 (Version 1)
Quarter: 2022Q1

REPORT INFORMATION
  Report Type: Spontaneous
  Country: US (occurrence: US)
  Receive Date: 20220304
  Receipt Date: 20220304
  Transmission Date: 20220423
  Serious: No
  Sender: FDA-Public Use
  Company Number: US-PURDUE PHARMA-USA-2021-0284266

PATIENT
  Sex: Female

DRUGS (1)
  1. BUTRANS [Suspect]
     Active Substance: BUPRENORPHINE
     Indication: Product used for unknown indication
     Route: 062

REACTIONS (8)
  - Hyperkeratosis [Unknown]
  - Skin burning sensation [Unknown]
  - Burning sensation [Unknown]
  - Product residue present [Unknown]
  - Skin ulcer [Unknown]
  - Blister [Unknown]
  - Application site burn [Unknown]
  - Constipation [Unknown]
